FAERS Safety Report 7642639-6 (Version None)
Quarter: 2011Q3

REPORT INFORMATION
  Report Type: 
  Country: None (occurrence: None)
  Receive Date: 20110728
  Receipt Date: 20110714
  Transmission Date: 20111222
  Serious: Yes (Other)
  Sender: FDA-Public Use
  Company Number: GB-ASTRAZENECA-2011SE44510

PATIENT
  Age: 87 Year
  Sex: Female
  Weight: 62.6 kg

DRUGS (16)
  1. ASPIRIN [Concomitant]
     Dates: start: 20110415, end: 20110604
  2. LACTULOSE [Concomitant]
     Dates: start: 20110415, end: 20110518
  3. ZAPAIN [Concomitant]
     Dates: start: 20110415, end: 20110516
  4. ROSUVASTATIN [Suspect]
     Route: 048
  5. OMACOR [Concomitant]
     Dates: start: 20110507, end: 20110513
  6. CANDESARTAN CILEXETIL [Concomitant]
     Dates: start: 20110415, end: 20110604
  7. FUROSEMIDE [Concomitant]
     Dates: start: 20110415, end: 20110604
  8. RANITIDINE [Concomitant]
     Dates: start: 20110415, end: 20110518
  9. CLOPIDOGREL [Concomitant]
     Dates: start: 20110415, end: 20110606
  10. ACETAMINOPHEN [Concomitant]
     Dates: start: 20110415, end: 20110604
  11. XALATAN [Concomitant]
     Dates: start: 20110325, end: 20110604
  12. ALPHAGAN [Concomitant]
     Dates: start: 20110415, end: 20110604
  13. BISOPROLOL FUMARATE [Concomitant]
     Dates: start: 20110415, end: 20110604
  14. ALGESAL [Concomitant]
     Dates: start: 20110415, end: 20110604
  15. COSOPT [Concomitant]
     Dates: start: 20110415, end: 20110604
  16. VISCOTEARS [Concomitant]
     Dates: start: 20110415, end: 20110514

REACTIONS (4)
  - HYPOKINESIA [None]
  - MUSCULOSKELETAL STIFFNESS [None]
  - ARTHRALGIA [None]
  - MYALGIA [None]
